FAERS Safety Report 8974399 (Version 8)
Quarter: 2015Q2

REPORT INFORMATION
  Report Type: Spontaneous
  Country: US (occurrence: US)
  Receive Date: 20121219
  Receipt Date: 20150617
  Transmission Date: 20150821
  Serious: No
  Sender: FDA-Public Use
  Company Number: US-009507513-1212USA006787

PATIENT
  Sex: Male
  Weight: 75.28 kg

DRUGS (3)
  1. PROSCAR [Suspect]
     Active Substance: FINASTERIDE
     Indication: ALOPECIA
     Route: 048
  2. PROPECIA [Suspect]
     Active Substance: FINASTERIDE
     Dosage: 1 MG, BID
     Route: 048
  3. PROPECIA [Suspect]
     Active Substance: FINASTERIDE
     Indication: ANDROGENETIC ALOPECIA
     Dosage: 1 MG, QD
     Route: 048
     Dates: start: 200501, end: 200610

REACTIONS (20)
  - Anxiety [Unknown]
  - Milia [Unknown]
  - Anger [Unknown]
  - Dyspepsia [Unknown]
  - Skin lesion [Unknown]
  - Erectile dysfunction [Unknown]
  - Cognitive disorder [Unknown]
  - Penile pain [Unknown]
  - Peyronie^s disease [Not Recovered/Not Resolved]
  - Seasonal allergy [Unknown]
  - Depression [Unknown]
  - Fibrous histiocytoma [Unknown]
  - Drug administration error [Unknown]
  - Penile neoplasm [Unknown]
  - Inappropriate schedule of drug administration [Unknown]
  - Acne [Unknown]
  - Hypoaesthesia [Unknown]
  - Cerumen impaction [Unknown]
  - Sexual dysfunction [Unknown]
  - Libido decreased [Unknown]

NARRATIVE: CASE EVENT DATE: 200507
